FAERS Safety Report 18307111 (Version 1)
Quarter: 2020Q3

REPORT INFORMATION
  Report Type: Spontaneous
  Country: US (occurrence: US)
  Receive Date: 20200924
  Receipt Date: 20200924
  Transmission Date: 20201103
  Serious: Yes (Hospitalization)
  Sender: FDA-Public Use
  Company Number: US-UPSHER-SMITH LABORATORIES, LLC-2020USL00494

PATIENT
  Sex: Female

DRUGS (2)
  1. BUMETANIDE. [Suspect]
     Active Substance: BUMETANIDE
     Indication: FLUID RETENTION
     Dosage: UNK
     Dates: end: 202009
  2. POTASSIUM CHLORIDE. [Suspect]
     Active Substance: POTASSIUM CHLORIDE

REACTIONS (3)
  - Blood potassium increased [Unknown]
  - Drug ineffective [Recovered/Resolved]
  - Fluid retention [Recovering/Resolving]
